FAERS Safety Report 13023900 (Version 1)
Quarter: 2016Q4

REPORT INFORMATION
  Report Type: Spontaneous
  Country: FR (occurrence: FR)
  Receive Date: 20161213
  Receipt Date: 20161213
  Transmission Date: 20170207
  Serious: Yes (Other)
  Sender: FDA-Public Use
  Company Number: FR-ELI_LILLY_AND_COMPANY-FR201612000242

PATIENT
  Age: 64 Year
  Sex: Female
  Weight: 55 kg

DRUGS (4)
  1. ZOMETA [Suspect]
     Active Substance: ZOLEDRONIC ACID
     Indication: OSTEOPOROSIS PROPHYLAXIS
     Dosage: UNK, UNKNOWN
     Route: 042
     Dates: start: 201111, end: 201205
  2. ALIMTA [Suspect]
     Active Substance: PEMETREXED DISODIUM
     Indication: LUNG ADENOCARCINOMA METASTATIC
     Dosage: 820 MG, CYCLICAL
     Route: 042
     Dates: start: 20111109
  3. CISPLATINE ACCORD [Suspect]
     Active Substance: CISPLATIN
     Indication: LUNG ADENOCARCINOMA METASTATIC
     Dosage: 123 MG, CYCLICAL
     Route: 042
     Dates: start: 20111109
  4. AVASTIN [Suspect]
     Active Substance: BEVACIZUMAB
     Indication: LUNG ADENOCARCINOMA METASTATIC
     Dosage: 412.5 MG, CYCLICAL
     Route: 042
     Dates: start: 20111109

REACTIONS (2)
  - Off label use [Unknown]
  - Osteonecrosis of jaw [Unknown]

NARRATIVE: CASE EVENT DATE: 20111109
